FAERS Safety Report 9121939 (Version 1)
Quarter: 2013Q1

REPORT INFORMATION
  Report Type: Spontaneous
  Country: FI (occurrence: FI)
  Receive Date: 20130114
  Receipt Date: 20130114
  Transmission Date: 20140127
  Serious: Yes (Other)
  Sender: FDA-Public Use
  Company Number: FI-PFIZER INC-2013011765

PATIENT
  Age: 31 Year
  Sex: Male

DRUGS (2)
  1. LYRICA [Suspect]
     Dosage: UNK
  2. GABAPENTIN [Suspect]
     Indication: DRUG WITHDRAWAL MAINTENANCE THERAPY
     Dosage: UNK

REACTIONS (9)
  - Drug dependence [Unknown]
  - Withdrawal syndrome [Unknown]
  - Temperature regulation disorder [Unknown]
  - Decreased appetite [Unknown]
  - Anger [Unknown]
  - Off label use [Unknown]
  - Anxiety [Unknown]
  - Irritability [Unknown]
  - Social avoidant behaviour [Unknown]
